FAERS Safety Report 9310041 (Version 3)
Quarter: 2013Q4

REPORT INFORMATION
  Report Type: Report from Study
  Country: DE (occurrence: DE)
  Receive Date: 20130527
  Receipt Date: 20131223
  Transmission Date: 20140711
  Serious: Yes (Death, Life-Threatening, Other)
  Sender: FDA-Public Use
  Company Number: DE-BIOGENIDEC-2013BI045553

PATIENT
  Age: 54 Year
  Sex: Female

DRUGS (8)
  1. TYSABRI [Suspect]
     Indication: RELAPSING-REMITTING MULTIPLE SCLEROSIS
     Dates: start: 20120125, end: 20121206
  2. LEVODOPA [Concomitant]
     Indication: PROGRESSIVE SUPRANUCLEAR PALSY
     Dates: start: 20120107
  3. L-THYROX [Concomitant]
     Indication: HYPOTHYROIDISM
     Dates: start: 20080101
  4. MEMANTINE [Concomitant]
     Dates: start: 20130101
  5. RAMIPRIL [Concomitant]
     Indication: HYPERTONIA
     Dates: start: 20120517
  6. CIPRAMIL [Concomitant]
     Indication: ELEVATED MOOD
     Dates: start: 20130101
  7. TILIDIN [Concomitant]
     Indication: PAIN IN EXTREMITY
     Dates: start: 20120920
  8. NOVALGIN [Concomitant]
     Indication: PAIN IN EXTREMITY
     Dates: start: 20120515

REACTIONS (1)
  - Completed suicide [Fatal]
